FAERS Safety Report 6154583-4 (Version None)
Quarter: 2009Q2

REPORT INFORMATION
  Report Type: 
  Country: None (occurrence: None)
  Receive Date: 20090414
  Receipt Date: 20090407
  Transmission Date: 20091009
  Serious: Yes (Other)
  Sender: FDA-Public Use
  Company Number: AU-CELGENEUS-008-20785-09040715

PATIENT
  Sex: Male
  Weight: 92.7 kg

DRUGS (3)
  1. THALIDOMIDE [Suspect]
     Indication: MYELODYSPLASTIC SYNDROME
     Route: 048
     Dates: start: 20090310, end: 20090330
  2. VIDAZA [Suspect]
     Indication: MYELODYSPLASTIC SYNDROME
     Route: 065
     Dates: start: 20090310, end: 20090316
  3. ATACAND [Concomitant]
     Indication: HYPERTENSION
     Route: 048
     Dates: start: 20081201

REACTIONS (1)
  - ACCIDENTAL EXPOSURE [None]
